FAERS Safety Report 19847093 (Version 1)
Quarter: 2021Q3

REPORT INFORMATION
  Report Type: Spontaneous
  Country: KE (occurrence: KE)
  Receive Date: 20210917
  Receipt Date: 20210917
  Transmission Date: 20211014
  Serious: Yes (Hospitalization)
  Sender: FDA-Public Use
  Company Number: KE-LUPIN PHARMACEUTICALS INC.-2021-17604

PATIENT
  Age: 57 Year
  Sex: Male

DRUGS (3)
  1. LEVETIRACETAM. [Suspect]
     Active Substance: LEVETIRACETAM
     Indication: STATUS EPILEPTICUS
     Dosage: UNK
     Route: 042
  2. PHENYTOIN SODIUM. [Suspect]
     Active Substance: PHENYTOIN SODIUM
     Indication: STATUS EPILEPTICUS
     Dosage: UNK
     Route: 065
  3. METHYLPREDNISOLONE. [Suspect]
     Active Substance: METHYLPREDNISOLONE
     Indication: STATUS EPILEPTICUS
     Dosage: UNK HIGH?DOSE
     Route: 042

REACTIONS (1)
  - Drug ineffective [Unknown]
